FAERS Safety Report 7600988-1 (Version None)
Quarter: 2011Q3

REPORT INFORMATION
  Report Type: 
  Country: None (occurrence: None)
  Receive Date: 20110711
  Receipt Date: 20110616
  Transmission Date: 20111222
  Serious: Yes (Hospitalization)
  Sender: FDA-Public Use
  Company Number: US-GLAXOSMITHKLINE-A0813212A

PATIENT
  Age: 59 Year
  Sex: Female

DRUGS (1)
  1. AVANDIA [Suspect]
     Indication: TYPE 2 DIABETES MELLITUS
     Route: 048
     Dates: end: 20070201

REACTIONS (7)
  - FOOT FRACTURE [None]
  - FEMUR FRACTURE [None]
  - BLINDNESS [None]
  - ANKLE FRACTURE [None]
  - CARDIAC FAILURE CONGESTIVE [None]
  - OSTEOGENESIS IMPERFECTA [None]
  - UPPER LIMB FRACTURE [None]
